FAERS Safety Report 6174542-5 (Version None)
Quarter: 2009Q2

REPORT INFORMATION
  Report Type: 
  Country: None (occurrence: None)
  Receive Date: 20090430
  Receipt Date: 20080729
  Transmission Date: 20091009
  Serious: No
  Sender: FDA-Public Use
  Company Number: US-ASTRAZENECA-2008UW14785

PATIENT
  Age: 82 Year
  Sex: Female
  Weight: 61.2 kg

DRUGS (8)
  1. NEXIUM [Suspect]
     Route: 048
     Dates: start: 20080401
  2. LISINOPRIL [Concomitant]
     Route: 048
  3. NORVASC [Concomitant]
  4. COLCHICINE [Concomitant]
  5. ALLOPURINOL [Concomitant]
  6. SPIRIVA [Concomitant]
  7. NASONEX [Concomitant]
  8. EYE MEDICATION [Concomitant]

REACTIONS (2)
  - RASH PRURITIC [None]
  - WHEEZING [None]
